FAERS Safety Report 6986471-5 (Version None)
Quarter: 2010Q3

REPORT INFORMATION
  Report Type: 
  Country: None (occurrence: None)
  Receive Date: 20100915
  Receipt Date: 20090709
  Transmission Date: 20110219
  Serious: No
  Sender: FDA-Public Use
  Company Number: US-WYE-H10099409

PATIENT
  Age: 59 Year
  Sex: Female

DRUGS (5)
  1. PRISTIQ [Suspect]
     Indication: DEPRESSION
     Route: 048
     Dates: start: 20090601, end: 20090601
  2. VALIUM [Concomitant]
  3. LORCET-HD [Concomitant]
  4. IBUPROFEN [Concomitant]
  5. CHLOROQUINE PHOSPHATE [Concomitant]

REACTIONS (1)
  - SOMNOLENCE [None]
